FAERS Safety Report 8569839-5 (Version None)
Quarter: 2012Q3

REPORT INFORMATION
  Report Type: 
  Country: None (occurrence: None)
  Receive Date: 20120803
  Receipt Date: 20120220
  Transmission Date: 20120928
  Serious: No
  Sender: FDA-Public Use
  Company Number: US-ABBOTT-12P-163-0907391-00

PATIENT
  Sex: Female
  Weight: 90.8 kg

DRUGS (7)
  1. PRAVACHOL [Concomitant]
     Indication: BLOOD CHOLESTEROL INCREASED
  2. ASPIRIN [Concomitant]
     Indication: PRODUCT USED FOR UNKNOWN INDICATION
  3. NIASPAN [Suspect]
     Dosage: DAILY
     Dates: end: 20120216
  4. NIASPAN [Suspect]
     Indication: HIGH DENSITY LIPOPROTEIN DECREASED
     Dosage: DAILY
  5. TOPROL-XL [Concomitant]
     Indication: HYPERTENSION
  6. PRAVACHOL [Concomitant]
  7. IMDUR [Concomitant]
     Indication: ANGINA PECTORIS

REACTIONS (3)
  - FLUSHING [None]
  - HEPATIC ENZYME INCREASED [None]
  - NAUSEA [None]
